FAERS Safety Report 9665646 (Version 5)
Quarter: 2014Q1

REPORT INFORMATION
  Report Type: Report from Study
  Country: JP (occurrence: JP)
  Receive Date: 20131104
  Receipt Date: 20140123
  Transmission Date: 20141002
  Serious: Yes (Death)
  Sender: FDA-Public Use
  Company Number: JP-AMGEN-JPNCT2013067580

PATIENT
  Age: 89 Year
  Sex: Male
  Weight: 55 kg

DRUGS (33)
  1. PURSENNIDE [Concomitant]
     Indication: CONSTIPATION
     Dosage: UNK
     Route: 048
  2. COVERSYL [Concomitant]
     Indication: CARDIAC FAILURE CONGESTIVE
     Dosage: UNK
     Route: 048
     Dates: start: 20111102, end: 20130312
  3. MYSLEE [Concomitant]
     Indication: INSOMNIA
     Dosage: UNK
     Route: 048
  4. RESTAMIN [Concomitant]
     Indication: DERMATITIS ATOPIC
     Dosage: UNK
     Route: 061
  5. KENKETSU VENOGLOBULIN-IH [Concomitant]
     Indication: IMMUNE THROMBOCYTOPENIC PURPURA
     Dosage: 20000 MG, UNK
     Route: 042
     Dates: start: 20110823, end: 20110827
  6. PURSENNID [Concomitant]
     Indication: CONSTIPATION
     Dosage: UNK
     Route: 048
  7. ROMIPLATE [Suspect]
     Indication: IMMUNE THROMBOCYTOPENIC PURPURA
     Dosage: 2 MUG/KG, QWK
     Route: 058
     Dates: start: 20110830, end: 20130306
  8. ROMIPLATE [Suspect]
     Dosage: 1 MUG/KG, 1X/WEEK
     Route: 058
     Dates: start: 20110830, end: 20110906
  9. ROMIPLATE [Suspect]
     Dosage: 2 MUG/KG, QD
     Route: 058
     Dates: start: 20110913, end: 20110913
  10. ROMIPLATE [Suspect]
     Dosage: 3 MUG/KG, QD
     Route: 058
     Dates: start: 20110920, end: 20110920
  11. ROMIPLATE [Suspect]
     Dosage: 4 MUG/KG, 1X/WEEK
     Route: 058
     Dates: start: 20110927, end: 20111011
  12. ROMIPLATE [Suspect]
     Dosage: 5 MUG/KG, QD
     Route: 058
     Dates: start: 20111018, end: 20111018
  13. ROMIPLATE [Suspect]
     Dosage: 6 MUG/KG, 1X/WEEK
     Route: 058
     Dates: start: 20111026, end: 20111103
  14. ROMIPLATE [Suspect]
     Dosage: 6 MUG/KG, 1X/WEEK
     Route: 058
     Dates: start: 20111118, end: 20111209
  15. ROMIPLATE [Suspect]
     Dosage: 5 MUG/KG, QD
     Route: 058
     Dates: start: 20111216, end: 20111216
  16. ROMIPLATE [Suspect]
     Dosage: 4 MUG/KG, 1X/WEEK
     Route: 058
     Dates: start: 20111222, end: 20120203
  17. ROMIPLATE [Suspect]
     Dosage: 3 MUG/KG, 1X/WEEK
     Route: 058
     Dates: start: 20120210, end: 20120217
  18. ROMIPLATE [Suspect]
     Dosage: 2 MUG/KG, 1X/WEEK
     Route: 058
     Dates: start: 20120224, end: 20120316
  19. ROMIPLATE [Suspect]
     Dosage: 3 MUG/KG, 1X/WEEK
     Route: 058
     Dates: start: 20120323, end: 20120404
  20. ROMIPLATE [Suspect]
     Dosage: 2 MUG/KG, 1X/WEEK
     Route: 058
     Dates: start: 20120411, end: 20120808
  21. ROMIPLATE [Suspect]
     Dosage: 1 MUG/KG, 1X/WEEK
     Route: 058
     Dates: start: 20120815, end: 20120926
  22. ROMIPLATE [Suspect]
     Dosage: 2 MUG/KG, 1X/WEEK
     Route: 058
     Dates: start: 20121003, end: 20121226
  23. ROMIPLATE [Suspect]
     Dosage: 2 MUG/KG, 1X/WEEK
     Route: 058
     Dates: start: 20130109, end: 20130306
  24. KENKETSU VENOGLOBULIN IH [Concomitant]
     Indication: IMMUNE THROMBOCYTOPENIC PURPURA
     Dosage: 20000 MG, UNK
     Route: 042
     Dates: start: 20110823, end: 20110827
  25. LASIX [Concomitant]
     Indication: CARDIAC FAILURE CONGESTIVE
     Dosage: UNK
     Route: 048
     Dates: end: 20130312
  26. ALDACTONE A [Concomitant]
     Indication: CARDIAC FAILURE CONGESTIVE
     Dosage: UNK
     Route: 048
     Dates: start: 20130227, end: 20130312
  27. FLUITRAN [Concomitant]
     Indication: CARDIAC FAILURE CONGESTIVE
     Dosage: UNK
     Route: 048
     Dates: start: 20130306, end: 20130312
  28. PIMOBENDAN [Concomitant]
     Indication: CARDIAC FAILURE CONGESTIVE
     Dosage: UNK
     Route: 048
     Dates: start: 20130306, end: 20130312
  29. TAKEPRON [Concomitant]
     Indication: PROPHYLAXIS
     Dosage: UNK
     Route: 065
  30. JANUVIA [Concomitant]
     Indication: DIABETES MELLITUS
     Dosage: UNK
     Route: 048
  31. AMARYL [Concomitant]
     Indication: DIABETES MELLITUS
     Dosage: UNK
     Route: 048
     Dates: start: 20130206
  32. MAGMITT [Concomitant]
     Indication: CONSTIPATION
     Dosage: UNK
     Route: 048
  33. GASTER D [Concomitant]
     Indication: GASTRITIS
     Dosage: UNK
     Route: 048

REACTIONS (2)
  - Cardiac failure [Fatal]
  - Diabetes mellitus [Not Recovered/Not Resolved]
